FAERS Safety Report 5843565-5 (Version None)
Quarter: 2008Q3

REPORT INFORMATION
  Report Type: 
  Country: None (occurrence: None)
  Receive Date: 20080813
  Receipt Date: 20080422
  Transmission Date: 20090109
  Serious: No
  Sender: FDA-Public Use
  Company Number: A0724109A

PATIENT
  Age: 61 Year
  Sex: Male

DRUGS (8)
  1. COREG CR [Suspect]
     Indication: HYPERTENSION
     Dosage: 40MG PER DAY
     Route: 048
     Dates: start: 20080410
  2. CLONIDINE [Concomitant]
  3. PLAVIX [Concomitant]
  4. LASIX [Concomitant]
  5. AVAPRO [Concomitant]
  6. ATACAND [Concomitant]
  7. CRESTOR [Concomitant]
  8. INSPRA [Concomitant]

REACTIONS (1)
  - HEART RATE INCREASED [None]
